FAERS Safety Report 6803369-3 (Version None)
Quarter: 2010Q2

REPORT INFORMATION
  Report Type: 
  Country: None (occurrence: None)
  Receive Date: 20100628
  Receipt Date: 20100618
  Transmission Date: 20101027
  Serious: Yes (Other)
  Sender: FDA-Public Use
  Company Number: JP-PFIZER INC-2010076111

PATIENT
  Age: 90 Year
  Sex: Male

DRUGS (1)
  1. DETRUSITOL [Suspect]
     Dosage: UNK
     Route: 048
     Dates: start: 20100421

REACTIONS (1)
  - ARTHRALGIA [None]
